FAERS Safety Report 7653096-8 (Version None)
Quarter: 2011Q3

REPORT INFORMATION
  Report Type: 
  Country: None (occurrence: None)
  Receive Date: 20110802
  Receipt Date: 20110802
  Transmission Date: 20111222
  Serious: Yes (Other)
  Sender: FDA-Public Use
  Company Number: None

PATIENT
  Sex: Female
  Weight: 63.5036 kg

DRUGS (3)
  1. XOPENEX [Suspect]
     Indication: ASTHMA
     Dosage: P.F.T. INHALE
     Route: 055
     Dates: start: 20110628
  2. XOPENEX [Suspect]
     Indication: DYSPNOEA
     Dosage: P.F.T. INHALE
     Route: 055
     Dates: start: 20110628
  3. XOPENEX [Suspect]
     Indication: PULMONARY FUNCTION TEST DECREASED
     Dosage: P.F.T. INHALE
     Route: 055
     Dates: start: 20110628

REACTIONS (1)
  - BRONCHOSPASM PARADOXICAL [None]
